FAERS Safety Report 6521201-2 (Version None)
Quarter: 2009Q4

REPORT INFORMATION
  Report Type: 
  Country: None (occurrence: None)
  Receive Date: 20091229
  Receipt Date: 20091222
  Transmission Date: 20100525
  Serious: Yes (Hospitalization)
  Sender: FDA-Public Use
  Company Number: FR-BAYER-200943845GPV

PATIENT
  Age: 52 Year
  Sex: Female

DRUGS (8)
  1. CIFLOX [Suspect]
     Indication: DRUG USE FOR UNKNOWN INDICATION
     Dosage: UNIT DOSE: 500 MG
     Route: 048
     Dates: start: 20091025, end: 20091026
  2. FLAGYL [Suspect]
     Indication: DRUG USE FOR UNKNOWN INDICATION
     Route: 048
     Dates: start: 20091025, end: 20091026
  3. DI-ANTALVIC [Suspect]
     Indication: DRUG USE FOR UNKNOWN INDICATION
     Route: 048
     Dates: start: 20091025, end: 20091026
  4. SPASFON [Suspect]
     Indication: ABDOMINAL PAIN LOWER
     Route: 048
     Dates: start: 20091024, end: 20091026
  5. ENTOCORT EC [Suspect]
     Indication: DRUG USE FOR UNKNOWN INDICATION
     Route: 048
     Dates: start: 20090801, end: 20091026
  6. FIVASA [Suspect]
     Indication: DRUG USE FOR UNKNOWN INDICATION
     Route: 048
     Dates: start: 20091020, end: 20091020
  7. COAPROVEL [Suspect]
     Indication: HYPERTENSION
     Route: 048
     Dates: start: 20090801, end: 20091026
  8. SMECTA [Suspect]
     Indication: ABDOMINAL PAIN LOWER
     Route: 048
     Dates: start: 20091024, end: 20091025

REACTIONS (3)
  - AGRANULOCYTOSIS [None]
  - ASTHENIA [None]
  - HYPERTHERMIA [None]
